FAERS Safety Report 7514724-0 (Version None)
Quarter: 2011Q2

REPORT INFORMATION
  Report Type: 
  Country: None (occurrence: None)
  Receive Date: 20110422
  Receipt Date: 20110330
  Transmission Date: 20111010
  Serious: Yes (Hospitalization)
  Sender: FDA-Public Use
  Company Number: 2011AL000013

PATIENT
  Sex: Female

DRUGS (1)
  1. PRALATREXATE (PRALATREXATE) [Suspect]
     Indication: HEAD AND NECK CANCER
     Dates: start: 20110109

REACTIONS (2)
  - NEUTROPHIL COUNT DECREASED [None]
  - STOMATITIS [None]
